FAERS Safety Report 9574786 (Version 1)
Quarter: 2013Q4

REPORT INFORMATION
  Report Type: Spontaneous
  Country: US (occurrence: US)
  Receive Date: 20131001
  Receipt Date: 20131001
  Transmission Date: 20140711
  Serious: No
  Sender: FDA-Public Use
  Company Number: US-BANPHARM-20131517

PATIENT
  Age: 90 Year
  Sex: Female
  Weight: 58.97 kg

DRUGS (8)
  1. LOPERAMIDE HCL CAPSULES, 2 MG [Suspect]
     Indication: DIARRHOEA
     Dosage: PER LABEL, PRN,
     Route: 048
     Dates: end: 20130718
  2. ASPIRIN 81 MG [Concomitant]
  3. MILK OF MAGNESIA [Concomitant]
  4. METOPROLOL [Concomitant]
     Dosage: 50 MG,
  5. LEVOTHYROXINE [Concomitant]
     Dosage: 100 MG, QOD,
  6. WARFARIN [Concomitant]
     Dosage: 6 MG,
  7. ATORVASTATIN [Concomitant]
     Dosage: 10 MG,
  8. TEMAZEPAM [Concomitant]

REACTIONS (2)
  - Foreign body [Recovered/Resolved]
  - Throat irritation [Recovered/Resolved]
